FAERS Safety Report 20539607 (Version 1)
Quarter: 2022Q1

REPORT INFORMATION
  Report Type: Spontaneous
  Country: GB (occurrence: GB)
  Receive Date: 20220302
  Receipt Date: 20220302
  Transmission Date: 20220423
  Serious: Yes (Other)
  Sender: FDA-Public Use
  Company Number: None

PATIENT
  Age: 42 Year
  Sex: Female
  Weight: 58 kg

DRUGS (1)
  1. SIMPONI [Suspect]
     Active Substance: GOLIMUMAB
     Indication: Ankylosing spondylitis
     Dosage: 50MG
     Route: 051
     Dates: start: 201611, end: 201705

REACTIONS (2)
  - Immobile [Recovered/Resolved with Sequelae]
  - Iritis [Recovered/Resolved with Sequelae]

NARRATIVE: CASE EVENT DATE: 20170101
